FAERS Safety Report 9744050 (Version 3)
Quarter: 2014Q1

REPORT INFORMATION
  Report Type: Spontaneous
  Country: GB (occurrence: GB)
  Receive Date: 20131210
  Receipt Date: 20140121
  Transmission Date: 20141002
  Serious: Yes (Hospitalization, Other)
  Sender: FDA-Public Use
  Company Number: GB-PFIZER INC-2013350480

PATIENT
  Age: 5 Year
  Sex: Female
  Weight: 19.8 kg

DRUGS (11)
  1. IBUPROFEN [Suspect]
     Dosage: 100 MG, UNK
     Route: 048
     Dates: start: 20131121, end: 20131121
  2. BACLOFEN [Suspect]
     Dosage: 15 MG, UNK
     Route: 048
     Dates: start: 20131124
  3. CEFTRIAXONE [Concomitant]
  4. RANITIDINE [Concomitant]
  5. PARACETAMOL [Concomitant]
  6. POTASSIUM CHLORIDE [Concomitant]
  7. MAGNESIUM SULFATE [Concomitant]
  8. CALCIUM GLUCONATE [Concomitant]
  9. CLARITHROMYCIN [Concomitant]
  10. ACICLOVIR [Concomitant]
  11. MAGNESIUM ASPARTATE [Concomitant]

REACTIONS (6)
  - Renal failure [Recovered/Resolved]
  - Depressed level of consciousness [Recovered/Resolved]
  - Nephropathy toxic [Recovered/Resolved]
  - Drug withdrawal syndrome [Recovered/Resolved]
  - Electrolyte imbalance [Recovered/Resolved]
  - Polyuria [Recovered/Resolved]
